FAERS Safety Report 17879864 (Version 1)
Quarter: 2020Q2

REPORT INFORMATION
  Report Type: Spontaneous
  Country: US (occurrence: US)
  Receive Date: 20200610
  Receipt Date: 20200610
  Transmission Date: 20200714
  Serious: No
  Sender: FDA-Public Use
  Company Number: US-PFIZER INC-2020224629

PATIENT
  Sex: Female

DRUGS (2)
  1. XELJANZ XR [Suspect]
     Active Substance: TOFACITINIB CITRATE
     Dosage: UNK
  2. ACYCLOVIR. [Interacting]
     Active Substance: ACYCLOVIR
     Indication: HERPES ZOSTER
     Dosage: UNK

REACTIONS (2)
  - Headache [Unknown]
  - Drug interaction [Unknown]
